FAERS Safety Report 5524884-9 (Version None)
Quarter: 2007Q4

REPORT INFORMATION
  Report Type: 
  Country: None (occurrence: None)
  Receive Date: 20071119
  Receipt Date: 20071107
  Transmission Date: 20080405
  Serious: No
  Sender: FDA-Public Use
  Company Number: 2007-167128-NL

PATIENT
  Sex: Female

DRUGS (2)
  1. MIRTAZAPINE [Suspect]
     Dosage: 15 MG/30 MG/45 MG
     Dates: start: 20070112, end: 20070319
  2. MIRTAZAPINE [Suspect]
     Dosage: 15 MG/30 MG/45 MG
     Dates: start: 20070801, end: 20070801

REACTIONS (1)
  - ELECTROCARDIOGRAM QT PROLONGED [None]
